FAERS Safety Report 21824768 (Version 9)
Quarter: 2024Q1

REPORT INFORMATION
  Report Type: Spontaneous
  Country: US (occurrence: US)
  Receive Date: 20230105
  Receipt Date: 20240124
  Transmission Date: 20240409
  Serious: Yes (Other)
  Sender: FDA-Public Use
  Company Number: US-PFIZER INC-2021353592

PATIENT
  Age: 61 Year
  Sex: Female
  Weight: 85.7 kg

DRUGS (2)
  1. PREMARIN [Suspect]
     Active Substance: ESTROGENS, CONJUGATED
     Indication: Urinary tract infection
     Dosage: UNK
  2. ESTRING [Suspect]
     Active Substance: ESTRADIOL
     Indication: Urinary tract infection
     Dosage: 2 MG (PLACE 2MG VAGINALLY ONCE EVERY 3 MONTHS)
     Route: 067

REACTIONS (3)
  - Clostridium difficile infection [Unknown]
  - Confusional state [Unknown]
  - Off label use [Unknown]
